FAERS Safety Report 16735178 (Version 1)
Quarter: 2019Q3

REPORT INFORMATION
  Report Type: Spontaneous
  Country: US (occurrence: US)
  Receive Date: 20190708
  Receipt Date: 20190708
  Transmission Date: 20191005
  Serious: No
  Sender: FDA-Public Use
  Company Number: None

PATIENT
  Age: 57 Year
  Sex: Female

DRUGS (1)
  1. SIMPONI [Suspect]
     Active Substance: GOLIMUMAB
     Indication: ANKYLOSING SPONDYLITIS
     Dosage: ?          OTHER FREQUENCY:Q4WK;?
     Route: 058
     Dates: start: 20190409

REACTIONS (3)
  - Eye pruritus [None]
  - Eye pain [None]
  - Dry eye [None]

NARRATIVE: CASE EVENT DATE: 201905
